FAERS Safety Report 10531746 (Version 3)
Quarter: 2014Q4

REPORT INFORMATION
  Report Type: Report from Study
  Country: FR (occurrence: FR)
  Receive Date: 20141021
  Receipt Date: 20141215
  Transmission Date: 20150529
  Serious: Yes (Death, Hospitalization)
  Sender: FDA-Public Use
  Company Number: FR-BAYER-2014-148643

PATIENT
  Age: 66 Year
  Sex: Male
  Weight: 91 kg

DRUGS (6)
  1. SORAFENIB (RAF KINASE INHIBITOR) [Suspect]
     Active Substance: SORAFENIB
     Indication: HEPATOCELLULAR CARCINOMA
     Dosage: DAILY DOSE 800 MG
     Route: 048
     Dates: start: 20131022, end: 20131024
  2. GADOXETIC ACID DISODIUM [Suspect]
     Active Substance: GADOXETATE DISODIUM
     Dosage: DAILY DOSE 9 ML
     Route: 042
     Dates: start: 20130927, end: 20130927
  3. EUPANTOL [Concomitant]
     Active Substance: PANTOPRAZOLE SODIUM
     Indication: GASTROOESOPHAGEAL REFLUX DISEASE
     Dosage: 20 MG DAILY
     Route: 048
     Dates: start: 20131001, end: 20131027
  4. ALDACTONE [Concomitant]
     Active Substance: SPIRONOLACTONE
     Indication: ASCITES
     Dosage: DAILY DOSE 100 MG
     Route: 048
     Dates: start: 20131001, end: 20131027
  5. LASILIX [Concomitant]
     Active Substance: FUROSEMIDE
     Indication: ASCITES
     Dosage: DAILY DOSE 60 MG
     Route: 048
     Dates: start: 20131001, end: 20131027
  6. PROPANOLOL [Concomitant]
     Active Substance: PROPRANOLOL HYDROCHLORIDE
     Indication: GASTRIC HAEMORRHAGE
     Dosage: DAILY DOSE 120 MG
     Route: 048
     Dates: start: 20131001, end: 20131027

REACTIONS (6)
  - Gastrointestinal toxicity [Fatal]
  - Diarrhoea [None]
  - Acute kidney injury [None]
  - Metabolic acidosis [None]
  - Gastrointestinal haemorrhage [Fatal]
  - Escherichia sepsis [None]

NARRATIVE: CASE EVENT DATE: 20131027
